FAERS Safety Report 5003345-X (Version None)
Quarter: 2006Q2

REPORT INFORMATION
  Report Type: 
  Country: None (occurrence: None)
  Receive Date: 20060511
  Receipt Date: 20060428
  Transmission Date: 20061013
  Serious: Yes (Other)
  Sender: FDA-Public Use
  Company Number: 2005BH000608

PATIENT
  Age: 33 Year
  Sex: Female

DRUGS (1)
  1. LACTATED RINGER'S IN PLASTIC CONTAINER [Suspect]
     Indication: CAESAREAN SECTION
     Dosage: IV
     Route: 042
     Dates: start: 20050622

REACTIONS (4)
  - ERYTHEMA [None]
  - EYELID OEDEMA [None]
  - EYELIDS PRURITUS [None]
  - PHARMACEUTICAL PRODUCT COMPLAINT [None]
